FAERS Safety Report 9154074 (Version 1)
Quarter: 2013Q1

REPORT INFORMATION
  Report Type: Spontaneous
  Country: US (occurrence: None)
  Receive Date: 20130306
  Receipt Date: 20130306
  Transmission Date: 20140127
  Serious: Yes (Other)
  Sender: FDA-Public Use
  Company Number: None

PATIENT
  Sex: Male
  Weight: 74.39 kg

DRUGS (1)
  1. SUBOXONE [Suspect]
     Indication: ATTENTION DEFICIT/HYPERACTIVITY DISORDER
     Dosage: 2: 8MG/2MG 2AYLY UNDER TONGUE
     Dates: start: 20130123, end: 20130218

REACTIONS (3)
  - Facial pain [None]
  - Headache [None]
  - Malaise [None]
